FAERS Safety Report 6829697-3 (Version None)
Quarter: 2010Q3

REPORT INFORMATION
  Report Type: 
  Country: None (occurrence: None)
  Receive Date: 20100709
  Receipt Date: 20070622
  Transmission Date: 20110219
  Serious: Yes (Other)
  Sender: FDA-Public Use
  Company Number: US-PFIZER INC-2007016845

PATIENT
  Sex: Female
  Weight: 83.9 kg

DRUGS (8)
  1. CHANTIX [Suspect]
     Indication: SMOKING CESSATION THERAPY
     Dates: start: 20070224, end: 20070228
  2. MORPHINE SULFATE [Concomitant]
  3. HYDROCODONE BITARTRATE [Concomitant]
  4. CLONAZEPAM [Concomitant]
  5. CLONIDINE [Concomitant]
  6. LISINOPRIL [Concomitant]
     Indication: HYPERTENSION
  7. PROMETHAZINE [Concomitant]
  8. NEXIUM [Concomitant]

REACTIONS (5)
  - DRUG INEFFECTIVE [None]
  - HYPERSENSITIVITY [None]
  - MEDICATION ERROR [None]
  - PRURITUS [None]
  - URTICARIA [None]
